FAERS Safety Report 9250493 (Version 1)
Quarter: 2013Q1

REPORT INFORMATION
  Report Type: Spontaneous
  Country: US (occurrence: None)
  Receive Date: 20130305
  Receipt Date: 20130305
  Transmission Date: 20140127
  Serious: Yes (Other)
  Sender: FDA-Public Use
  Company Number: 163-21880-12062669

PATIENT
  Age: 77 Year
  Sex: Female

DRUGS (4)
  1. REVLIMID [Suspect]
     Indication: PLASMA CELL MYELOMA
     Dates: start: 20100824
  2. OXYCODONE  HCL (OXYCODONE HYDROCHLORIDE) [Concomitant]
  3. METOPROLOL HYDROCHLOROTHIAZIDE (CO-BETALOC_ [Concomitant]
  4. LISINOPRIL (LISINOPRIL) [Concomitant]

REACTIONS (2)
  - Diarrhoea [None]
  - Fatigue [None]
